FAERS Safety Report 8153694-1 (Version None)
Quarter: 2012Q1

REPORT INFORMATION
  Report Type: 
  Country: None (occurrence: None)
  Receive Date: 20120221
  Receipt Date: 20120213
  Transmission Date: 20120608
  Serious: Yes (Disabling)
  Sender: FDA-Public Use
  Company Number: CA-B.I. PHARMACEUTICALS,INC./RIDGEFIELD-2012-CN-00246CN

PATIENT
  Age: 64 Year
  Sex: Male

DRUGS (1)
  1. MIRAPEX [Suspect]
     Dosage: 1.5 MG
     Route: 048

REACTIONS (4)
  - COMPULSIVE SHOPPING [None]
  - HYPERSEXUALITY [None]
  - OBSESSIVE-COMPULSIVE DISORDER [None]
  - DEPENDENCE [None]
